FAERS Safety Report 8804511 (Version 1)
Quarter: 2012Q4

REPORT INFORMATION
  Report Type: 
  Country: US (occurrence: US)
  Receive Date: 20120923
  Receipt Date: 20120923
  Transmission Date: 20130627
  Serious: Yes (Hospitalization)
  Sender: FDA-Public Use
  Company Number: US-009507513-2012SP029665

PATIENT
  Sex: Female

DRUGS (6)
  1. SAPHRIS [Suspect]
     Indication: SCHIZOPHRENIA
     Dosage: 10 mg, q3h
     Route: 060
     Dates: start: 20111013
  2. ABILIFY [Concomitant]
     Dosage: 60 mg, qam
  3. ZYPREXA [Concomitant]
     Dosage: 60 mg, hs
  4. LURASIDONE HYDROCHLORIDE [Concomitant]
     Dosage: Trade name: latuda
  5. SEROQUEL [Concomitant]
     Dosage: 300 mg, hs
  6. SEROQUEL [Concomitant]
     Dosage: 200 mg, q3h
     Route: 048

REACTIONS (2)
  - Pelvic fracture [Unknown]
  - Overdose [Not Recovered/Not Resolved]
